FAERS Safety Report 9524915 (Version 1)
Quarter: 2013Q3

REPORT INFORMATION
  Report Type: Spontaneous
  Country: US (occurrence: None)
  Receive Date: 20130912
  Receipt Date: 20130912
  Transmission Date: 20140515
  Serious: Yes (Disabling)
  Sender: FDA-Public Use
  Company Number: None

PATIENT
  Age: 45 Year
  Sex: Female
  Weight: 79.38 kg

DRUGS (2)
  1. VENLAFAXINE HCL ER [Suspect]
     Indication: DEPRESSION
     Route: 048
  2. VENLAFAXINE HCL ER [Suspect]
     Indication: ANXIETY
     Route: 048

REACTIONS (27)
  - Withdrawal syndrome [None]
  - Amnesia [None]
  - Fatigue [None]
  - Dizziness [None]
  - Nausea [None]
  - Balance disorder [None]
  - Syncope [None]
  - Feeling abnormal [None]
  - Disturbance in attention [None]
  - Thinking abnormal [None]
  - Speech disorder [None]
  - Sensory disturbance [None]
  - Fear of disease [None]
  - Palpitations [None]
  - Dyspnoea [None]
  - Arthropathy [None]
  - Asthenia [None]
  - Muscular weakness [None]
  - Visual impairment [None]
  - Feeling abnormal [None]
  - Feeling abnormal [None]
  - Gait disturbance [None]
  - Impaired driving ability [None]
  - Activities of daily living impaired [None]
  - Drug dependence [None]
  - Impaired work ability [None]
  - Family stress [None]
